FAERS Safety Report 6428007-3 (Version None)
Quarter: 2009Q4

REPORT INFORMATION
  Report Type: 
  Country: None (occurrence: None)
  Receive Date: 20091102
  Receipt Date: 20091022
  Transmission Date: 20100525
  Serious: Yes (Disabling)
  Sender: FDA-Public Use
  Company Number: A-US2009-28503

PATIENT
  Age: 78 Year
  Sex: Female

DRUGS (1)
  1. VENTAVIS [Suspect]
     Indication: DRUG USE FOR UNKNOWN INDICATION
     Dosage: 5 UG, QID, RESPIRATORY
     Route: 055
     Dates: start: 20091010

REACTIONS (5)
  - ABDOMINAL PAIN UPPER [None]
  - BEDRIDDEN [None]
  - DYSGEUSIA [None]
  - HEADACHE [None]
  - THROAT IRRITATION [None]
